FAERS Safety Report 5491819-7 (Version None)
Quarter: 2007Q4

REPORT INFORMATION
  Report Type: 
  Country: None (occurrence: None)
  Receive Date: 20071019
  Receipt Date: 20071019
  Transmission Date: 20080405
  Serious: Yes (Hospitalization)
  Sender: FDA-Public Use
  Company Number: None

PATIENT
  Sex: Male
  Weight: 106 kg

DRUGS (1)
  1. CISPLATIN [Suspect]
     Dosage: 390 MG
     Dates: end: 20071001

REACTIONS (1)
  - ATRIAL FIBRILLATION [None]
